FAERS Safety Report 18832570 (Version 1)
Quarter: 2021Q1

REPORT INFORMATION
  Report Type: Spontaneous
  Country: US (occurrence: US)
  Receive Date: 20210203
  Receipt Date: 20210203
  Transmission Date: 20210419
  Serious: Yes (Hospitalization)
  Sender: FDA-Public Use
  Company Number: None

PATIENT
  Age: 73 Year
  Sex: Male

DRUGS (2)
  1. PEMBROLIZUMAB (PEMBROLIZUMAB 50MG/VIL INJ) [Suspect]
     Active Substance: PEMBROLIZUMAB
     Indication: NEOPLASM MALIGNANT
     Dates: start: 20200928
  2. DOCETAXEL (DOCETAXEL 20MG/VIL INJ, CONC) [Suspect]
     Active Substance: DOCETAXEL
     Indication: NEOPLASM MALIGNANT
     Dates: end: 20200928

REACTIONS (4)
  - Febrile neutropenia [None]
  - Vomiting [None]
  - Nausea [None]
  - Decreased appetite [None]

NARRATIVE: CASE EVENT DATE: 20201006
